FAERS Safety Report 15075547 (Version 1)
Quarter: 2018Q2

REPORT INFORMATION
  Report Type: Report from Study
  Country: US (occurrence: US)
  Receive Date: 20180627
  Receipt Date: 20180627
  Transmission Date: 20180711
  Serious: Yes (Other)
  Sender: FDA-Public Use
  Company Number: US-SAOL THERAPEUTICS-2018SAO00425

PATIENT
  Age: 56 Year
  Sex: Male

DRUGS (4)
  1. CLONIDINE. [Suspect]
     Active Substance: CLONIDINE
     Dosage: 699.3 ?G, \DAY
     Route: 037
     Dates: start: 20120206
  2. BACLOFEN. [Suspect]
     Active Substance: BACLOFEN
     Dosage: 699.3 ?G, \DAY
     Route: 037
     Dates: start: 20120206
  3. BUPIVACAINE. [Suspect]
     Active Substance: BUPIVACAINE
     Dosage: 11.655 MG, \DAY
     Route: 037
     Dates: start: 20120206
  4. SUFENTA [Suspect]
     Active Substance: SUFENTANIL CITRATE
     Dosage: 139.86 ?G, \DAY
     Route: 037
     Dates: start: 20120206

REACTIONS (4)
  - Device leakage [Recovered/Resolved]
  - Catheter site fibrosis [Unknown]
  - Pain [Recovered/Resolved]
  - Complication associated with device [Recovered/Resolved]

NARRATIVE: CASE EVENT DATE: 2012
